FAERS Safety Report 4634132-X (Version None)
Quarter: 2005Q2

REPORT INFORMATION
  Report Type: 
  Country: None (occurrence: None)
  Receive Date: 20050405
  Receipt Date: 20050405
  Transmission Date: 20051028
  Serious: Yes (Other)
  Sender: FDA-Public Use
  Company Number: None

PATIENT
  Age: 11 Year
  Sex: Male
  Weight: 40.3701 kg

DRUGS (3)
  1. STRATTERA [Suspect]
     Indication: AFFECTIVE DISORDER
     Dosage: 1 QD
     Dates: start: 20040224, end: 20040719
  2. STRATTERA [Suspect]
     Indication: ATTENTION DEFICIT/HYPERACTIVITY DISORDER
     Dosage: 1 QD
     Dates: start: 20040224, end: 20040719
  3. STRATTERA [Suspect]
     Indication: BIPOLAR DISORDER
     Dosage: 1 QD
     Dates: start: 20040224, end: 20040719

REACTIONS (1)
  - BLOOD PRESSURE DECREASED [None]
